FAERS Safety Report 13380164 (Version 1)
Quarter: 2017Q1

REPORT INFORMATION
  Report Type: Spontaneous
  Country: US (occurrence: US)
  Receive Date: 20170328
  Receipt Date: 20170328
  Transmission Date: 20170429
  Serious: Yes (Hospitalization)
  Sender: FDA-Public Use
  Company Number: US-ELI_LILLY_AND_COMPANY-US201608002791

PATIENT
  Age: 35 Year
  Sex: Female

DRUGS (1)
  1. CYMBALTA [Suspect]
     Active Substance: DULOXETINE HYDROCHLORIDE
     Indication: PRODUCT USED FOR UNKNOWN INDICATION
     Dosage: 1 DF, QD
     Route: 065

REACTIONS (17)
  - Alcoholism [Unknown]
  - Affect lability [Unknown]
  - Nausea [Unknown]
  - Depression [Unknown]
  - Agitation [Unknown]
  - Drug dose omission [Unknown]
  - Nightmare [Unknown]
  - Insomnia [Unknown]
  - Intentional overdose [Unknown]
  - Paraesthesia [Unknown]
  - Irritability [Unknown]
  - Depression suicidal [Unknown]
  - Sensory disturbance [Unknown]
  - Drug withdrawal syndrome [Unknown]
  - Suicide attempt [Unknown]
  - Anxiety [Unknown]
  - Photosensitivity reaction [Unknown]

NARRATIVE: CASE EVENT DATE: 20140222
